FAERS Safety Report 14392056 (Version 4)
Quarter: 2018Q1

REPORT INFORMATION
  Report Type: Spontaneous
  Country: US (occurrence: US)
  Receive Date: 20180116
  Receipt Date: 20180228
  Transmission Date: 20180509
  Serious: No
  Sender: FDA-Public Use
  Company Number: US-GLAXOSMITHKLINE-US2018GSK005510

PATIENT
  Sex: Male

DRUGS (1)
  1. IMITREX [Suspect]
     Active Substance: SUMATRIPTAN SUCCINATE
     Indication: MIGRAINE

REACTIONS (5)
  - Migraine [Unknown]
  - Drug ineffective [Unknown]
  - Vomiting [Unknown]
  - Drug dose omission [Unknown]
  - Product availability issue [Unknown]
